FAERS Safety Report 7095967-X (Version None)
Quarter: 2010Q4

REPORT INFORMATION
  Report Type: 
  Country: None (occurrence: None)
  Receive Date: 20101111
  Receipt Date: 20080312
  Transmission Date: 20110411
  Serious: No
  Sender: FDA-Public Use
  Company Number: US-KINGPHARMUSA00001-K200800326

PATIENT
  Age: 34 Year
  Sex: Male

DRUGS (1)
  1. EPIPEN [Suspect]
     Dosage: UNK, SINGLE
     Dates: start: 20080312, end: 20080312

REACTIONS (6)
  - ACCIDENTAL EXPOSURE [None]
  - BLOOD PRESSURE INCREASED [None]
  - INJECTION SITE ANAESTHESIA [None]
  - INJECTION SITE PAIN [None]
  - INJECTION SITE PALLOR [None]
  - TACHYCARDIA [None]
